FAERS Safety Report 25204718 (Version 3)
Quarter: 2025Q4

REPORT INFORMATION
  Report Type: Spontaneous
  Country: JP (occurrence: JP)
  Receive Date: 20250416
  Receipt Date: 20251015
  Transmission Date: 20260117
  Serious: Yes (Other)
  Sender: MERCK SHARP & DOHME LLC
  Company Number: JP-MSD-M2024-50098

PATIENT
  Age: 74 Year
  Sex: Male

DRUGS (5)
  1. KEYTRUDA [Suspect]
     Active Substance: PEMBROLIZUMAB
     Indication: Gastric cancer stage IV
     Dosage: DOSE DESCRIPTION : 200 MILLIGRAM, Q3W?DAILY DOSE : 9.4 MILLIGRAM?REGIMEN DOSE : 200  MILLIGRAM
     Route: 041
     Dates: start: 202409
  2. CAPECITABINE [Suspect]
     Active Substance: CAPECITABINE
     Indication: Gastric cancer stage IV
     Dosage: DOSE DESCRIPTION : 1000 MILLIGRAM/SQ. METER
     Route: 048
     Dates: start: 202409, end: 2024
  3. CAPECITABINE [Suspect]
     Active Substance: CAPECITABINE
     Indication: Gastric cancer stage IV
     Dosage: DOSE DESCRIPTION : UNK
     Route: 048
     Dates: start: 2024
  4. OXALIPLATIN [Suspect]
     Active Substance: OXALIPLATIN
     Indication: Gastric cancer stage IV
     Dosage: DOSE DESCRIPTION : 130 MILLIGRAM/SQ. METER
     Route: 041
     Dates: start: 202409, end: 2024
  5. OXALIPLATIN [Suspect]
     Active Substance: OXALIPLATIN
     Indication: Gastric cancer stage IV
     Dosage: DOSE DESCRIPTION : UNK
     Route: 042
     Dates: start: 2024, end: 2025

REACTIONS (3)
  - Renal impairment [Recovering/Resolving]
  - Adrenal insufficiency [Unknown]
  - Malaise [Recovered/Resolved]

NARRATIVE: CASE EVENT DATE: 20240101
